FAERS Safety Report 15478924 (Version 1)
Quarter: 2018Q4

REPORT INFORMATION
  Report Type: Report from Study
  Country: AR (occurrence: AR)
  Receive Date: 20181009
  Receipt Date: 20181009
  Transmission Date: 20190205
  Serious: Yes (Death, Other)
  Sender: FDA-Public Use
  Company Number: AR-SAKK-2018SA274221AA

PATIENT
  Age: 64 Year
  Sex: Male

DRUGS (1)
  1. INSULIN GLARGINE [Suspect]
     Active Substance: INSULIN GLARGINE
     Indication: TYPE 2 DIABETES MELLITUS
     Dosage: UNK
     Route: 058
     Dates: start: 20110809, end: 20180906

REACTIONS (3)
  - Metastases to lung [Unknown]
  - Death [Fatal]
  - Renal cancer [Unknown]

NARRATIVE: CASE EVENT DATE: 20180906
